FAERS Safety Report 6818781-6 (Version None)
Quarter: 2010Q3

REPORT INFORMATION
  Report Type: 
  Country: None (occurrence: None)
  Receive Date: 20100701
  Receipt Date: 20100622
  Transmission Date: 20110219
  Serious: Yes (Hospitalization, Disabling)
  Sender: FDA-Public Use
  Company Number: 2010SP035235

PATIENT
  Age: 19 Year
  Sex: Female

DRUGS (2)
  1. SAPHRIS [Suspect]
     Indication: SCHIZOPHRENIA
     Dosage: 10 MG; BID
  2. SEROQUEL [Concomitant]

REACTIONS (3)
  - DISABILITY [None]
  - UNEVALUABLE EVENT [None]
  - WEIGHT DECREASED [None]
